FAERS Safety Report 25214575 (Version 1)
Quarter: 2025Q2

REPORT INFORMATION
  Report Type: Spontaneous
  Country: FR (occurrence: FR)
  Receive Date: 20250418
  Receipt Date: 20250418
  Transmission Date: 20250717
  Serious: Yes (Hospitalization)
  Sender: SERVIER
  Company Number: None

PATIENT

DRUGS (8)
  1. IVOSIDENIB [Interacting]
     Active Substance: IVOSIDENIB
     Indication: Acute myeloid leukaemia
     Dosage: 500 MG, QD, IN THE EVENING
     Route: 048
     Dates: start: 20250304, end: 20250319
  2. POSACONAZOLE [Interacting]
     Active Substance: POSACONAZOLE
     Indication: Opportunistic infection prophylaxis
     Dosage: 300 MG, QD, IN THE MORNING
     Route: 048
     Dates: start: 20250304, end: 20250319
  3. ATOVAQUONE [Suspect]
     Active Substance: ATOVAQUONE
     Indication: Opportunistic infection prophylaxis
     Dosage: 1500 MG (750 MG IN THE MORNING AND IN THE EVENING), QD
     Route: 048
     Dates: start: 20250304, end: 20250319
  4. VALACYCLOVIR HYDROCHLORIDE [Suspect]
     Active Substance: VALACYCLOVIR HYDROCHLORIDE
     Indication: Opportunistic infection prophylaxis
     Dosage: 1000 MG (500 MG IN THE MORNING AND IN THE EVENING), QD
     Route: 048
     Dates: start: 20250304, end: 20250319
  5. VIDAZA [Suspect]
     Active Substance: AZACITIDINE
     Indication: Acute myeloid leukaemia
     Dosage: 2 SUBCUTANEOUS INJECTIONS FOR 7 DAYS, DAY 1 - DAY 28
     Route: 058
     Dates: start: 20250304, end: 20250310
  6. CANDESARTAN CILEXETIL [Concomitant]
     Active Substance: CANDESARTAN CILEXETIL
     Indication: Hypertension
     Route: 048
     Dates: end: 20250318
  7. HYDROCHLOROTHIAZIDE [Concomitant]
     Active Substance: HYDROCHLOROTHIAZIDE
     Indication: Hypertension
     Route: 048
     Dates: end: 20250318
  8. METFORMIN HYDROCHLORIDE [Concomitant]
     Active Substance: METFORMIN HYDROCHLORIDE
     Indication: Diabetes mellitus
     Route: 048
     Dates: end: 20250318

REACTIONS (3)
  - Mixed liver injury [Recovering/Resolving]
  - Hypokalaemia [Recovering/Resolving]
  - Electrocardiogram U wave present [Recovering/Resolving]

NARRATIVE: CASE EVENT DATE: 20250317
